FAERS Safety Report 11793151 (Version 1)
Quarter: 2015Q4

REPORT INFORMATION
  Report Type: Report from Study
  Country: AR (occurrence: AR)
  Receive Date: 20151202
  Receipt Date: 20151202
  Transmission Date: 20160305
  Serious: Yes (Other)
  Sender: FDA-Public Use
  Company Number: PHHY2015AR156983

PATIENT
  Age: 80 Year
  Sex: Male

DRUGS (1)
  1. EXFORGE [Suspect]
     Active Substance: AMLODIPINE BESYLATE\VALSARTAN
     Indication: HYPERTENSION
     Dosage: 160/5 (UNITS NOT PROVIDED), QD
     Route: 065

REACTIONS (7)
  - Palpitations [Unknown]
  - Heart injury [Unknown]
  - Abdominal pain upper [Unknown]
  - Insomnia [Unknown]
  - Tremor [Unknown]
  - Arrhythmia [Unknown]
  - Discomfort [Unknown]

NARRATIVE: CASE EVENT DATE: 20151125
